FAERS Safety Report 21077051 (Version 1)
Quarter: 2022Q3

REPORT INFORMATION
  Report Type: Spontaneous
  Country: US (occurrence: None)
  Receive Date: 20220713
  Receipt Date: 20220713
  Transmission Date: 20221026
  Serious: No
  Sender: FDA-Public Use
  Company Number: None

PATIENT
  Age: 36 Year
  Sex: Female

DRUGS (1)
  1. TALTZ [Suspect]
     Active Substance: IXEKIZUMAB
     Indication: Psoriasis
     Dosage: INJECT 160MG (2 SYRINGES) SUBCUTANEOUSLY AT WEEK 0, THEN 80MG (1 SYRINGE) AT WEEK 2   AS DIRECTED?
     Route: 058
     Dates: start: 202205

REACTIONS (2)
  - Ill-defined disorder [None]
  - SARS-CoV-2 test positive [None]
